FAERS Safety Report 4442382-0 (Version None)
Quarter: 2004Q3

REPORT INFORMATION
  Report Type: 
  Country: None (occurrence: None)
  Receive Date: 20040903
  Receipt Date: 20040719
  Transmission Date: 20050211
  Serious: Yes (Other)
  Sender: FDA-Public Use
  Company Number: 2004UW15058

PATIENT
  Age: 67 Year
  Sex: Female
  Weight: 76.2043 kg

DRUGS (3)
  1. CRESTOR [Suspect]
     Indication: BLOOD CHOLESTEROL INCREASED
     Dosage: 10 MG PO
     Route: 048
  2. GLIPIZIDE [Concomitant]
  3. DIGOXIN [Concomitant]

REACTIONS (4)
  - ABDOMINAL PAIN UPPER [None]
  - BURNING SENSATION [None]
  - EYE PRURITUS [None]
  - HEADACHE [None]
